FAERS Safety Report 5286699-9 (Version None)
Quarter: 2007Q2

REPORT INFORMATION
  Report Type: 
  Country: None (occurrence: None)
  Receive Date: 20070404
  Receipt Date: 20070330
  Transmission Date: 20071010
  Serious: Yes (Hospitalization, Other)
  Sender: FDA-Public Use
  Company Number: 2006UW12326

PATIENT
  Age: 53 Year
  Sex: Female
  Weight: 69.1 kg

DRUGS (2)
  1. SEROQUEL [Suspect]
     Route: 048
     Dates: start: 20060101
  2. ZYPREXA [Suspect]

REACTIONS (11)
  - ANXIETY [None]
  - BLOOD CHOLESTEROL INCREASED [None]
  - CYST [None]
  - DIABETES MELLITUS [None]
  - GASTRIC ULCER [None]
  - HYPERLIPIDAEMIA [None]
  - LIMB INJURY [None]
  - OBESITY [None]
  - PANCREATITIS [None]
  - PANIC ATTACK [None]
  - TARDIVE DYSKINESIA [None]
